FAERS Safety Report 5597938-9 (Version None)
Quarter: 2008Q1

REPORT INFORMATION
  Report Type: 
  Country: None (occurrence: None)
  Receive Date: 20080122
  Receipt Date: 20080109
  Transmission Date: 20080703
  Serious: Yes (Other)
  Sender: FDA-Public Use
  Company Number: US-BAYER-200811022NA

PATIENT
  Age: 28 Year
  Sex: Female
  Weight: 66 kg

DRUGS (3)
  1. MIRENA [Suspect]
     Indication: CONTRACEPTION
     Route: 015
     Dates: start: 20070803, end: 20080108
  2. LORTAB [Concomitant]
  3. PHENERGAN HCL [Concomitant]

REACTIONS (4)
  - PYELONEPHRITIS [None]
  - URETERIC STENOSIS [None]
  - URINARY TRACT INFECTION [None]
  - URINE ODOUR ABNORMAL [None]
